FAERS Safety Report 9663507 (Version 1)
Quarter: 2013Q4

REPORT INFORMATION
  Report Type: Spontaneous
  Country: US (occurrence: US)
  Receive Date: 20131101
  Receipt Date: 20131101
  Transmission Date: 20140711
  Serious: No
  Sender: FDA-Public Use
  Company Number: US-ENDO PHARMACEUTICALS INC.-LISI20110007

PATIENT
  Sex: Male

DRUGS (1)
  1. LISINOPRIL TABLETS 10MG [Suspect]
     Indication: HYPERTENSION
     Route: 048
     Dates: start: 201104, end: 201104

REACTIONS (2)
  - Palpitations [Unknown]
  - Anxiety [Unknown]
